FAERS Safety Report 17539036 (Version 1)
Quarter: 2020Q1

REPORT INFORMATION
  Report Type: Spontaneous
  Country: US (occurrence: US)
  Receive Date: 20200306
  Receipt Date: 20200306
  Transmission Date: 20200409
  Serious: Yes (Hospitalization)
  Sender: FDA-Public Use
  Company Number: None

PATIENT
  Age: 55 Year
  Sex: Female
  Weight: 89.81 kg

DRUGS (1)
  1. PREDNISONE (PREDNISONE 10MG TAB) [Suspect]
     Active Substance: PREDNISONE
     Indication: MIGRAINE
     Route: 048
     Dates: start: 20190923, end: 20191003

REACTIONS (4)
  - Confusional state [None]
  - Hallucination [None]
  - Psychotic disorder [None]
  - Paranoia [None]

NARRATIVE: CASE EVENT DATE: 20191003
